FAERS Safety Report 7958068-1 (Version None)
Quarter: 2011Q4

REPORT INFORMATION
  Report Type: 
  Country: None (occurrence: None)
  Receive Date: 20111201
  Receipt Date: 20111116
  Transmission Date: 20120403
  Serious: Yes (Life-Threatening)
  Sender: FDA-Public Use
  Company Number: 2011MA016770

PATIENT
  Age: 76 Year
  Sex: Female

DRUGS (10)
  1. ATENOLOL [Concomitant]
  2. FEVERALL [Suspect]
     Dosage: IV
     Route: 042
     Dates: start: 20111014, end: 20111031
  3. METFORMIN HCL [Concomitant]
  4. NITRATES [Concomitant]
  5. ALBUTEROL SULFATE AUTOHALER [Concomitant]
  6. DILTIAZEM HCL [Concomitant]
  7. STATIN [Concomitant]
  8. ZOPICLONE [Concomitant]
  9. BETAHISTINE [Concomitant]
  10. PENICILLIN [Concomitant]

REACTIONS (4)
  - URINE ANALYSIS ABNORMAL [None]
  - HIP FRACTURE [None]
  - LOWER RESPIRATORY TRACT INFECTION [None]
  - METABOLIC ACIDOSIS [None]
